FAERS Safety Report 9769146 (Version 1)
Quarter: 2013Q4

REPORT INFORMATION
  Report Type: Spontaneous
  Country: US (occurrence: None)
  Receive Date: 20131217
  Receipt Date: 20131217
  Transmission Date: 20140711
  Serious: No
  Sender: FDA-Public Use
  Company Number: None

PATIENT
  Age: 38 Day
  Sex: Male
  Weight: 5.06 kg

DRUGS (1)
  1. HYOSYNE [Suspect]

REACTIONS (2)
  - Medication error [None]
  - Intercepted drug dispensing error [None]
